FAERS Safety Report 7240943-7 (Version None)
Quarter: 2011Q1

REPORT INFORMATION
  Report Type: 
  Country: None (occurrence: None)
  Receive Date: 20110110
  Receipt Date: 20101229
  Transmission Date: 20110831
  Serious: Yes (Hospitalization)
  Sender: FDA-Public Use
  Company Number: 2010027254

PATIENT
  Sex: Female

DRUGS (2)
  1. PRIVIGEN [Suspect]
     Indication: PROPHYLAXIS
     Dosage: (10 G QD INTRAVENOUS (NOT OTHERWISE SPECIFIED) ), (70 G QD INTRAVENOUS (NOT OTHERWISE SPECIFIED)
     Route: 042
     Dates: start: 20101027, end: 20101027
  2. PRIVIGEN [Suspect]
     Indication: PROPHYLAXIS
     Dosage: (10 G QD INTRAVENOUS (NOT OTHERWISE SPECIFIED) ), (70 G QD INTRAVENOUS (NOT OTHERWISE SPECIFIED)
     Route: 042
     Dates: start: 20101028, end: 20101028

REACTIONS (2)
  - TRANSPLANT REJECTION [None]
  - THROMBOTIC MICROANGIOPATHY [None]
